FAERS Safety Report 18397006 (Version 3)
Quarter: 2020Q4

REPORT INFORMATION
  Report Type: Spontaneous
  Country: IT (occurrence: IT)
  Receive Date: 20201019
  Receipt Date: 20201204
  Transmission Date: 20210114
  Serious: Yes (Other)
  Sender: FDA-Public Use
  Company Number: IT-SUN PHARMACEUTICAL INDUSTRIES LTD-2020RR-264354

PATIENT
  Age: 53 Year
  Sex: Female

DRUGS (7)
  1. CARDIOASPIRINA [Suspect]
     Active Substance: ASPIRIN
     Indication: COVID-19
     Dosage: 500 MILLIGRAM, BID
     Route: 042
  2. PLAQUENIL [Suspect]
     Active Substance: HYDROXYCHLOROQUINE SULFATE
     Indication: COVID-19
     Dosage: 200 MILLIGRAM, BID
     Route: 065
  3. URBASON [Suspect]
     Active Substance: METHYLPREDNISOLONE
     Indication: COVID-19
     Dosage: 1 MILLIGRAM/KILOGRAM, DAILY
     Route: 065
  4. CARDICOR [Suspect]
     Active Substance: BISOPROLOL
     Indication: CARDIAC FAILURE
     Dosage: 2.5 MILLIGRAM, DAILY
  5. KALETRA [Suspect]
     Active Substance: LOPINAVIR\RITONAVIR
     Indication: COVID-19
     Dosage: 2 TABLETS OF 200/50 MG TWICE DAILY
     Route: 065
  6. KANRENOL [Suspect]
     Active Substance: CANRENOATE POTASSIUM
     Indication: CARDIAC FAILURE
     Dosage: 50 MILLIGRAM, DAILY
     Route: 065
  7. LASIX [Suspect]
     Active Substance: FUROSEMIDE
     Indication: CARDIAC FAILURE
     Dosage: 25 TO 50 MG
     Route: 065

REACTIONS (3)
  - Off label use [Unknown]
  - Sinus bradycardia [Recovering/Resolving]
  - Therapeutic response unexpected [Unknown]
